FAERS Safety Report 8176166-7 (Version None)
Quarter: 2012Q1

REPORT INFORMATION
  Report Type: 
  Country: None (occurrence: None)
  Receive Date: 20120301
  Receipt Date: 20120220
  Transmission Date: 20120608
  Serious: Yes (Hospitalization)
  Sender: FDA-Public Use
  Company Number: US-BAYER-2011-069955

PATIENT
  Age: 23 Year
  Sex: Female
  Weight: 81.633 kg

DRUGS (1)
  1. YASMIN [Suspect]
     Dosage: UNK
     Dates: start: 20070101

REACTIONS (3)
  - CHOLECYSTITIS [None]
  - PAIN [None]
  - EMOTIONAL DISTRESS [None]
